FAERS Safety Report 9773477 (Version 4)
Quarter: 2014Q1

REPORT INFORMATION
  Report Type: Spontaneous
  Country: BR (occurrence: BR)
  Receive Date: 20131219
  Receipt Date: 20140203
  Transmission Date: 20141002
  Serious: Yes (Other)
  Sender: FDA-Public Use
  Company Number: PHHY2013BR132688

PATIENT
  Sex: Male

DRUGS (3)
  1. FORASEQ [Suspect]
     Indication: ASTHMA
     Dosage: 2 DF, DAILY
     Route: 055
  2. FORASEQ [Suspect]
     Dosage: 1 DF, DAILY (ONE CAPS OF TREATMENT 1 IN THE MORNING, AND ONE CAPS OF TREATMENT 2 IN THE AFTERNOON)
     Route: 055
  3. ASMAPEN [Concomitant]
     Indication: ASTHMA
     Dosage: 0.5 DF, QD (100 MG, AT NIGHT)
     Route: 048

REACTIONS (6)
  - Cataract [Recovered/Resolved]
  - Visual impairment [Unknown]
  - Hypertension [Recovering/Resolving]
  - Insomnia [Recovering/Resolving]
  - Incorrect dose administered [Unknown]
  - Drug ineffective [Not Recovered/Not Resolved]
